FAERS Safety Report 11589996 (Version 1)
Quarter: 2015Q4

REPORT INFORMATION
  Report Type: Spontaneous
  Country: US (occurrence: US)
  Receive Date: 20151002
  Receipt Date: 20151002
  Transmission Date: 20160304
  Serious: Yes (Hospitalization)
  Sender: FDA-Public Use
  Company Number: US-PFIZER INC-2015315505

PATIENT
  Age: 4 Year
  Sex: Female
  Weight: 18 kg

DRUGS (1)
  1. BENZOCAINE. [Suspect]
     Active Substance: BENZOCAINE
     Indication: ANAESTHESIA
     Dosage: 400 MG, UNK (2CC OF 20%)
     Route: 061

REACTIONS (1)
  - Methaemoglobinaemia [Recovering/Resolving]
